FAERS Safety Report 11821749 (Version 1)
Quarter: 2015Q4

REPORT INFORMATION
  Report Type: Spontaneous
  Country: GB (occurrence: GB)
  Receive Date: 20151210
  Receipt Date: 20151210
  Transmission Date: 20160305
  Serious: Yes (Other)
  Sender: FDA-Public Use
  Company Number: GB-TEVA-614496ACC

PATIENT
  Age: 64 Year
  Sex: Female
  Weight: 54 kg

DRUGS (7)
  1. AMITRIPTYLINE HYDROCHLORIDE. [Concomitant]
     Active Substance: AMITRIPTYLINE HYDROCHLORIDE
     Dosage: 1 DOSAGE FORMS DAILY;
     Dates: start: 20130830
  2. CLOPIDOGREL [Concomitant]
     Active Substance: CLOPIDOGREL BISULFATE
     Dosage: 1 DOSAGE FORMS DAILY;
     Dates: start: 20150930
  3. METHYLCELLULOSE [Concomitant]
     Active Substance: METHYLCELLULOSES
     Dosage: 6 DOSAGE FORMS DAILY;
     Dates: start: 20140213
  4. ATORVASTATIN [Suspect]
     Active Substance: ATORVASTATIN
     Dates: start: 20150930
  5. LEVOTHYROXINE. [Concomitant]
     Active Substance: LEVOTHYROXINE
     Dosage: 1 DOSAGE FORMS DAILY; 1 DSF (=DOSAGE FORM) EACH MORNING
     Dates: start: 20140725
  6. METOCLOPRAMIDE. [Concomitant]
     Active Substance: METOCLOPRAMIDE
     Dosage: SHORT TERM USE ONLY - TAKE ONE TABLET UP TO THREE TIMES A DAY
     Dates: start: 20151106, end: 20151111
  7. BISACODYL. [Concomitant]
     Active Substance: BISACODYL
     Dosage: TAKE ONE OR TWO AT NIGHT
     Dates: start: 20140512

REACTIONS (3)
  - Pyrexia [Recovering/Resolving]
  - Malaise [Recovering/Resolving]
  - Hepatitis acute [Recovering/Resolving]

NARRATIVE: CASE EVENT DATE: 20151120
